FAERS Safety Report 5874457-3 (Version None)
Quarter: 2008Q3

REPORT INFORMATION
  Report Type: 
  Country: None (occurrence: None)
  Receive Date: 20080908
  Receipt Date: 20080827
  Transmission Date: 20090109
  Serious: Yes (Congenital Anomaly)
  Sender: FDA-Public Use
  Company Number: JP-PFIZER INC-2008072824

PATIENT
  Weight: 1.625 kg

DRUGS (2)
  1. CABASER [Suspect]
     Indication: HYPERPROLACTINAEMIA
     Route: 064
  2. CABASER [Suspect]
     Indication: POLYCYSTIC OVARIES

REACTIONS (4)
  - APLASIA [None]
  - DRUG EXPOSURE DURING PREGNANCY [None]
  - HOLOPROSENCEPHALY [None]
  - PULMONARY HYPOPLASIA [None]
